FAERS Safety Report 16466115 (Version 2)
Quarter: 2019Q3

REPORT INFORMATION
  Report Type: Spontaneous
  Country: US (occurrence: US)
  Receive Date: 20190621
  Receipt Date: 20190924
  Transmission Date: 20191004
  Serious: No
  Sender: FDA-Public Use
  Company Number: US-ACORDA-ACO_158150_2019

PATIENT
  Age: 77 Year
  Sex: Male

DRUGS (6)
  1. SINEMET [Concomitant]
     Active Substance: CARBIDOPA\LEVODOPA
     Indication: PARKINSON^S DISEASE
     Dosage: 2 DOSAGE FORM (25 TO 100 MG), QID
     Route: 048
     Dates: start: 20180718
  2. DONEPEZIL. [Concomitant]
     Active Substance: DONEPEZIL
     Indication: DEMENTIA
     Dosage: 10 MILLIGRAM, QD
     Route: 048
     Dates: start: 20161213
  3. INBRIJA [Suspect]
     Active Substance: LEVODOPA
     Indication: PARKINSON^S DISEASE
     Dosage: 42 MILLIGRAM, 2 CAPS BID PRN
     Dates: start: 20190409
  4. EFFEXOR [Concomitant]
     Active Substance: VENLAFAXINE HYDROCHLORIDE
     Indication: PRODUCT USED FOR UNKNOWN INDICATION
     Dosage: 37.5 MILLIGRAM, QD
     Route: 048
     Dates: start: 20161213
  5. EFFEXOR [Concomitant]
     Active Substance: VENLAFAXINE HYDROCHLORIDE
     Dosage: 75 MILLIGRAM, QD
     Route: 048
     Dates: start: 201612
  6. TRAZODONE [Concomitant]
     Active Substance: TRAZODONE HYDROCHLORIDE
     Indication: BACK PAIN
     Dosage: 3 DOSAGE FORM, QD
     Route: 048
     Dates: start: 20180620

REACTIONS (5)
  - Foreign body in respiratory tract [Recovered/Resolved]
  - Cough [Recovered/Resolved]
  - Device issue [Unknown]
  - Device issue [Unknown]
  - Fatigue [Unknown]

NARRATIVE: CASE EVENT DATE: 20190409
